FAERS Safety Report 10274676 (Version 2)
Quarter: 2014Q3

REPORT INFORMATION
  Report Type: Spontaneous
  Country: US (occurrence: US)
  Receive Date: 20140702
  Receipt Date: 20140702
  Transmission Date: 20150326
  Serious: Yes (Hospitalization, Other)
  Sender: FDA-Public Use
  Company Number: US-RECKITT BENCKISER PHARMACEUTICAL, INC-RB-63936-2014

PATIENT
  Age: 40 Year
  Sex: Male

DRUGS (3)
  1. SUBOXONE [Suspect]
     Active Substance: BUPRENORPHINE HYDROCHLORIDE\NALOXONE HYDROCHLORIDE
     Indication: DRUG DEPENDENCE
     Dosage: 1/2 TABLET TWICE DAILY
     Route: 060
     Dates: start: 2005, end: 2011
  2. SUBOXONE [Suspect]
     Active Substance: BUPRENORPHINE HYDROCHLORIDE\NALOXONE HYDROCHLORIDE
     Indication: DRUG DEPENDENCE
     Dosage: SUBOXONE FILM; 1/2 STRIP TWICE A DAY
     Route: 060
     Dates: start: 2011, end: 2011
  3. SUBUTEX [Suspect]
     Active Substance: BUPRENORPHINE HYDROCHLORIDE
     Indication: DRUG DEPENDENCE
     Dosage: 1/2 TABLET, USING VARIOUS DOSES
     Route: 060
     Dates: start: 2011

REACTIONS (12)
  - Type 2 diabetes mellitus [Not Recovered/Not Resolved]
  - Joint swelling [Not Recovered/Not Resolved]
  - Concussion [Not Recovered/Not Resolved]
  - Road traffic accident [Recovered/Resolved]
  - Joint dislocation [Not Recovered/Not Resolved]
  - Arthropathy [Recovered/Resolved]
  - Ligament rupture [Recovering/Resolving]
  - Hypertension [Not Recovered/Not Resolved]
  - Brain injury [Not Recovered/Not Resolved]
  - Anxiety [Not Recovered/Not Resolved]
  - Amnesia [Not Recovered/Not Resolved]
  - Wrong technique in drug usage process [Not Recovered/Not Resolved]

NARRATIVE: CASE EVENT DATE: 2005
